FAERS Safety Report 15214735 (Version 7)
Quarter: 2020Q1

REPORT INFORMATION
  Report Type: Spontaneous
  Country: PT (occurrence: PT)
  Receive Date: 20180730
  Receipt Date: 20200127
  Transmission Date: 20200409
  Serious: Yes (Life-Threatening, Hospitalization, Other)
  Sender: FDA-Public Use
  Company Number: PT-GLAXOSMITHKLINE-PT2018132558

PATIENT
  Age: 48 Year
  Sex: Female
  Weight: 77 kg

DRUGS (16)
  1. METFORMIN [Interacting]
     Active Substance: METFORMIN HYDROCHLORIDE
     Indication: WEIGHT DECREASED
     Dosage: 200MG
     Route: 048
     Dates: start: 201708, end: 201804
  2. FUROSEMIDE. [Interacting]
     Active Substance: FUROSEMIDE
     Indication: WEIGHT DECREASED
     Dosage: 40 MG B.I.D.
     Route: 048
     Dates: start: 201708, end: 201804
  3. CHROMIUM PICOLINATE [Interacting]
     Active Substance: CHROMIUM PICOLINATE
     Indication: WEIGHT DECREASED
     Dosage: 200 MCG BID
     Route: 048
     Dates: start: 201708, end: 201804
  4. CASCARA SAGRADA [Interacting]
     Active Substance: FRANGULA PURSHIANA BARK
     Indication: WEIGHT DECREASED
     Dosage: 2 DF, QD
     Route: 048
     Dates: start: 201708, end: 201808
  5. CHLORDIAZEPOXIDE. [Interacting]
     Active Substance: CHLORDIAZEPOXIDE
     Indication: PRODUCT USE IN UNAPPROVED INDICATION
     Dosage: 10MG
     Route: 048
     Dates: start: 201708, end: 201804
  6. FLECAINIDE [Concomitant]
     Active Substance: FLECAINIDE
     Indication: VENTRICULAR EXTRASYSTOLES
     Dosage: (100 MG,1 IN 1D)
     Route: 048
     Dates: start: 201605
  7. TOPIRAMATE. [Interacting]
     Active Substance: TOPIRAMATE
     Indication: WEIGHT DECREASED
     Dosage: 10 MG BID
     Route: 048
     Dates: start: 201708, end: 201804
  8. BUPROPION HYDROCHLORIDE. [Interacting]
     Active Substance: BUPROPION HYDROCHLORIDE
     Indication: WEIGHT DECREASED
     Dosage: 100 MG B.I.D.
     Route: 048
     Dates: start: 201708, end: 201804
  9. ORLISTAT. [Suspect]
     Active Substance: ORLISTAT
     Indication: WEIGHT DECREASED
     Dosage: 50 MG B.I.D.
     Route: 048
     Dates: start: 201708, end: 201804
  10. CENTELLA ASIATICA [Interacting]
     Active Substance: CENTELLA ASIATICA WHOLE
     Indication: WEIGHT DECREASED
     Dosage: 200 MG BID
     Route: 048
     Dates: start: 201708, end: 201804
  11. MINULET [Interacting]
     Active Substance: ETHINYL ESTRADIOL\GESTODENE
     Indication: CONTRACEPTION
     Dosage: 1 DF, QD
     Route: 048
     Dates: start: 201711, end: 201804
  12. PHENOLPHTHALEIN [Interacting]
     Active Substance: PHENOLPHTHALEIN
     Indication: WEIGHT DECREASED
     Dosage: 80 MG B.I.D.
     Route: 048
     Dates: start: 201708, end: 201804
  13. MINULET [Interacting]
     Active Substance: ETHINYL ESTRADIOL\GESTODENE
     Dosage: UNK, RE-INTRODUCED 5 MONTHS BEFORE
     Route: 048
  14. SENNA [Suspect]
     Active Substance: SENNA LEAF\SENNOSIDES\SENNOSIDES A AND B
     Indication: WEIGHT CONTROL
     Dosage: 20 MG
     Route: 065
  15. ETHINYLOESTRADIOL+GESTODENE [Suspect]
     Active Substance: ETHINYL ESTRADIOL\GESTODENE
     Indication: WEIGHT CONTROL
     Dosage: UNK
     Route: 065
  16. CHLORDIAZEPOXIDE. [Interacting]
     Active Substance: CHLORDIAZEPOXIDE
     Indication: WEIGHT CONTROL
     Dosage: 10MG
     Route: 048
     Dates: start: 201708, end: 201804

REACTIONS (11)
  - Slow response to stimuli [Recovering/Resolving]
  - Headache [Recovering/Resolving]
  - Product use in unapproved indication [Unknown]
  - Cerebral venous thrombosis [Recovering/Resolving]
  - Psychomotor retardation [Recovering/Resolving]
  - Drug interaction [Unknown]
  - Intentional product misuse [Unknown]
  - Bradyphrenia [Recovering/Resolving]
  - Off label use [Unknown]
  - Thalamic infarction [Not Recovered/Not Resolved]
  - Fatigue [Recovering/Resolving]

NARRATIVE: CASE EVENT DATE: 201708
